FAERS Safety Report 24152968 (Version 3)
Quarter: 2024Q4

REPORT INFORMATION
  Report Type: Spontaneous
  Country: US (occurrence: US)
  Receive Date: 20240730
  Receipt Date: 20241024
  Transmission Date: 20250114
  Serious: No
  Sender: PFIZER
  Company Number: US-PFIZER INC-202400221221

PATIENT
  Age: 6 Year
  Sex: Female

DRUGS (1)
  1. GENOTROPIN [Suspect]
     Active Substance: SOMATROPIN
     Indication: Turner^s syndrome
     Dosage: ONCE A DAY BY INJECTION 6 DAYS A WEEK
     Dates: start: 202205, end: 20240719

REACTIONS (4)
  - Drug dose omission by device [Unknown]
  - Device use error [Unknown]
  - Device breakage [Unknown]
  - Expired device used [Unknown]

NARRATIVE: CASE EVENT DATE: 20240720
